FAERS Safety Report 20062633 (Version 5)
Quarter: 2021Q4

REPORT INFORMATION
  Report Type: Report from Study
  Country: EG (occurrence: EG)
  Receive Date: 20211112
  Receipt Date: 20211218
  Transmission Date: 20220303
  Serious: Yes (Other)
  Sender: FDA-Public Use
  Company Number: EG-NOVARTISPH-NVSC2021EG253268

PATIENT
  Age: 27 Year
  Sex: Male

DRUGS (6)
  1. COSENTYX [Suspect]
     Active Substance: SECUKINUMAB
     Indication: Psoriasis
     Dosage: 300 MG, QW FOR A MONTH (150MG 2 PENS EVERY 15 DAYS)
     Route: 058
     Dates: start: 201904
  2. COSENTYX [Suspect]
     Active Substance: SECUKINUMAB
     Dosage: 150 MG, QMO (1 PEN)
     Route: 065
     Dates: end: 202011
  3. COSENTYX [Suspect]
     Active Substance: SECUKINUMAB
     Dosage: 300 MG, QW FOR A MONTH (150MG 2 PENS)
     Route: 065
     Dates: start: 202101
  4. COSENTYX [Suspect]
     Active Substance: SECUKINUMAB
     Dosage: 150 MG, QMO (1 PEN)
     Route: 065
  5. NICOTINE [Concomitant]
     Active Substance: NICOTINE
     Indication: Product used for unknown indication
     Dosage: UNK
     Route: 065
  6. HERBALS [Concomitant]
     Active Substance: HERBALS
     Indication: Hypertension
     Dosage: 1 DF, QD (FOR 2 WEEKS)
     Route: 065
     Dates: start: 202105

REACTIONS (14)
  - Blood cholesterol increased [Not Recovered/Not Resolved]
  - Hypertension [Not Recovered/Not Resolved]
  - Musculoskeletal discomfort [Not Recovered/Not Resolved]
  - Decreased immune responsiveness [Not Recovered/Not Resolved]
  - Nasopharyngitis [Not Recovered/Not Resolved]
  - Cough [Unknown]
  - Fatigue [Recovered/Resolved]
  - Psoriasis [Recovered/Resolved]
  - Psoriasis [Unknown]
  - Skin exfoliation [Not Recovered/Not Resolved]
  - Skin lesion [Recovered/Resolved]
  - Scar [Recovered/Resolved]
  - Inappropriate schedule of product administration [Not Recovered/Not Resolved]
  - Product dose omission issue [Unknown]

NARRATIVE: CASE EVENT DATE: 20201001
